FAERS Safety Report 9888329 (Version 5)
Quarter: 2021Q4

REPORT INFORMATION
  Report Type: Spontaneous
  Country: US (occurrence: US)
  Receive Date: 20140211
  Receipt Date: 20211215
  Transmission Date: 20220303
  Serious: No
  Sender: FDA-Public Use
  Company Number: US-PFIZER INC-2014033555

PATIENT
  Age: 40 Year
  Sex: Female

DRUGS (4)
  1. CALAN SR [Suspect]
     Active Substance: VERAPAMIL HYDROCHLORIDE
     Indication: Cluster headache
     Dosage: 120 MG, 1X/DAY (ONE A DAY AT NIGHT)
     Route: 048
     Dates: start: 1995
  2. CALAN SR [Suspect]
     Active Substance: VERAPAMIL HYDROCHLORIDE
     Indication: Supraventricular tachycardia
     Dosage: 180 MG, UNK
  3. CALAN SR [Suspect]
     Active Substance: VERAPAMIL HYDROCHLORIDE
     Dosage: 240 MG, UNK
  4. CALAN SR [Suspect]
     Active Substance: VERAPAMIL HYDROCHLORIDE
     Dosage: 120 MG

REACTIONS (6)
  - Drug ineffective [Unknown]
  - Drug hypersensitivity [Unknown]
  - Pharyngeal disorder [Unknown]
  - Pharyngeal ulceration [Unknown]
  - Throat irritation [Unknown]
  - Off label use [Unknown]
